FAERS Safety Report 14572693 (Version 2)
Quarter: 2018Q1

REPORT INFORMATION
  Report Type: Spontaneous
  Country: US (occurrence: US)
  Receive Date: 20180226
  Receipt Date: 20180303
  Transmission Date: 20180509
  Serious: No
  Sender: FDA-Public Use
  Company Number: PHHY2018US032278

PATIENT
  Sex: Female

DRUGS (2)
  1. ICAPS LZ [Suspect]
     Active Substance: VITAMINS
     Indication: PRODUCT USED FOR UNKNOWN INDICATION
     Dosage: 2 DF, QD
     Route: 065
  2. ICAPS LZ [Suspect]
     Active Substance: VITAMINS
     Dosage: 1 DF, QD
     Route: 065

REACTIONS (1)
  - Headache [Recovered/Resolved]
